FAERS Safety Report 24064769 (Version 1)
Quarter: 2024Q3

REPORT INFORMATION
  Report Type: Spontaneous
  Country: US (occurrence: US)
  Receive Date: 20240709
  Receipt Date: 20240709
  Transmission Date: 20241017
  Serious: No
  Sender: SANOFI AVENTIS
  Company Number: US-SA-SAC20240704001354

PATIENT
  Age: 10 Year
  Sex: Male

DRUGS (2)
  1. ALPROLIX [Suspect]
     Active Substance: EFTRENONACOG ALFA
     Indication: Haemorrhage
     Dosage: 4000 UNITS (+/-5%) 2 (TWO) TIMES ,WEEKLY (MONDAY/THURSDAY)AND EVERY 24 HOURS AS NEEDED
     Route: 065
  2. ALPROLIX [Suspect]
     Active Substance: EFTRENONACOG ALFA
     Indication: Haemorrhage
     Dosage: 4000 UNITS (+/-5%) 2 (TWO) TIMES ,WEEKLY (MONDAY/THURSDAY)AND EVERY 24 HOURS AS NEEDED
     Route: 065

REACTIONS (1)
  - Joint injury [Unknown]

NARRATIVE: CASE EVENT DATE: 20240611
